FAERS Safety Report 8984481 (Version 1)
Quarter: 2012Q4

REPORT INFORMATION
  Report Type: 
  Country: US (occurrence: US)
  Receive Date: 20121226
  Receipt Date: 20121226
  Transmission Date: 20130627
  Serious: Yes (Hospitalization)
  Sender: FDA-Public Use
  Company Number: US-BAYER-2012-134609

PATIENT
  Age: 26 Year
  Sex: Female
  Weight: 56.69 kg

DRUGS (8)
  1. YAZ [Suspect]
  2. YASMIN [Suspect]
  3. OCELLA [Suspect]
  4. PROMETHAZINE [Concomitant]
  5. HYDROCODONE W/APAP [Concomitant]
  6. IBUPROFEN [Concomitant]
  7. DEMEROL [Concomitant]
  8. PHENERGAN [Concomitant]

REACTIONS (2)
  - Ovarian vein thrombosis [None]
  - Off label use [None]
